FAERS Safety Report 22530372 (Version 1)
Quarter: 2023Q2

REPORT INFORMATION
  Report Type: Spontaneous
  Country: US (occurrence: US)
  Receive Date: 20230607
  Receipt Date: 20230607
  Transmission Date: 20230721
  Serious: No
  Sender: FDA-Public Use
  Company Number: US-ABBVIE-5189603

PATIENT

DRUGS (4)
  1. LUPRON [Suspect]
     Active Substance: LEUPROLIDE ACETATE
     Indication: Product used for unknown indication
     Dosage: FREQUENCY TEXT: 1 MONTH
     Route: 030
  2. LUPRON [Suspect]
     Active Substance: LEUPROLIDE ACETATE
  3. LUPRON [Suspect]
     Active Substance: LEUPROLIDE ACETATE
  4. LUPRON [Suspect]
     Active Substance: LEUPROLIDE ACETATE

REACTIONS (3)
  - Pain [Unknown]
  - Drug ineffective [Unknown]
  - Adverse drug reaction [Unknown]
